FAERS Safety Report 13295499 (Version 3)
Quarter: 2017Q1

REPORT INFORMATION
  Report Type: Report from Study
  Country: PE (occurrence: PE)
  Receive Date: 20170303
  Receipt Date: 20170329
  Transmission Date: 20170428
  Serious: Yes (Hospitalization)
  Sender: FDA-Public Use
  Company Number: PE-ROCHE-1860312

PATIENT
  Age: 47 Year
  Sex: Male
  Weight: 50 kg

DRUGS (17)
  1. TRAMADOL + PARACETAMOL PHARMAKERN [Concomitant]
     Route: 065
     Dates: start: 201609, end: 20161122
  2. RANITIDINE. [Concomitant]
     Active Substance: RANITIDINE
     Indication: PROPHYLAXIS
     Route: 065
     Dates: start: 20160917
  3. CHLORPROMAZINE. [Concomitant]
     Active Substance: CHLORPROMAZINE
     Indication: HICCUPS
     Route: 065
     Dates: start: 2016, end: 20161223
  4. ALPRAZOLAM. [Concomitant]
     Active Substance: ALPRAZOLAM
     Indication: ANXIETY
     Route: 065
     Dates: start: 20161104
  5. AMOXICILLIN/CLAVULANIC ACID [Concomitant]
     Active Substance: AMOXICILLIN\CLAVULANIC ACID
     Route: 065
     Dates: start: 20161021, end: 20161025
  6. CEFTRIAXONE. [Concomitant]
     Active Substance: CEFTRIAXONE
     Route: 065
     Dates: start: 20161207, end: 20161213
  7. ONDANSETRON [Concomitant]
     Active Substance: ONDANSETRON
     Indication: PREMEDICATION
     Route: 065
     Dates: start: 20160917
  8. CLONAZEPAM. [Concomitant]
     Active Substance: CLONAZEPAM
     Indication: INSOMNIA
     Route: 065
     Dates: start: 20161014
  9. AMOXICILLIN/CLAVULANIC ACID [Concomitant]
     Active Substance: AMOXICILLIN\CLAVULANIC ACID
     Route: 065
     Dates: start: 20161214, end: 20161220
  10. CODEINE [Concomitant]
     Active Substance: CODEINE
     Indication: COUGH
     Route: 065
     Dates: start: 201608
  11. LORATADINE. [Concomitant]
     Active Substance: LORATADINE
     Indication: PRURITUS
  12. CHLORPHENIRAMINE. [Concomitant]
     Active Substance: CHLORPHENIRAMINE
     Indication: PREMEDICATION
     Route: 065
     Dates: start: 20160917
  13. CARBOPLATIN. [Suspect]
     Active Substance: CARBOPLATIN
     Indication: NON-SMALL CELL LUNG CANCER STAGE IV
     Dosage: AREA UNDER THE CONCENTRATION CURVE (AUC) 6 MG/ML/MIN ON DAY 1 OF EACH 21-DAY CYCLE FOR 4 OR 6 CYCLES
     Route: 042
     Dates: start: 20160917
  14. ATEZOLIZUMAB [Suspect]
     Active Substance: ATEZOLIZUMAB
     Indication: NON-SMALL CELL LUNG CANCER STAGE IV
     Dosage: MOST RECENT DOSE: 28/OCT/2016?THE MOST RECENT DOSE PRIOR TO BRONCHIAL INFECTION WAS ADMINISTERED ON
     Route: 042
     Dates: start: 20160917
  15. NAB-PACLITAXEL [Suspect]
     Active Substance: PACLITAXEL
     Indication: NON-SMALL CELL LUNG CANCER STAGE IV
     Dosage: MOST RECENT DOSE: 28/OCT/2016, 161 MG?THE MOST RECENT DOSE OF PACLITAXEL ALBUMIN 120 MG WAS ADMINIST
     Route: 042
     Dates: start: 20160917
  16. FILGRASTIM [Concomitant]
     Active Substance: FILGRASTIM
     Indication: NEUTROPENIA
     Route: 065
     Dates: start: 20161021
  17. LORATADINE. [Concomitant]
     Active Substance: LORATADINE
     Indication: RASH MACULO-PAPULAR
     Route: 065
     Dates: start: 20161021

REACTIONS (2)
  - Bronchitis [Recovered/Resolved]
  - Pneumonitis [Recovered/Resolved]

NARRATIVE: CASE EVENT DATE: 20161124
